FAERS Safety Report 14411591 (Version 1)
Quarter: 2018Q1

REPORT INFORMATION
  Report Type: Spontaneous
  Country: US (occurrence: US)
  Receive Date: 20180117
  Receipt Date: 20180117
  Transmission Date: 20180509
  Serious: Yes (Other)
  Sender: FDA-Public Use
  Company Number: None

PATIENT
  Age: 79 Year
  Sex: Female

DRUGS (13)
  1. FERROUS SULF [Concomitant]
     Active Substance: FERROUS SULFATE
  2. MUCINEX [Concomitant]
     Active Substance: GUAIFENESIN
  3. ZETIA [Concomitant]
     Active Substance: EZETIMIBE
  4. FERROUS SULF GRA [Concomitant]
  5. SPRYCEL [Suspect]
     Active Substance: DASATINIB
     Indication: CHRONIC MYELOID LEUKAEMIA
     Route: 048
     Dates: start: 20150303
  6. MULTIVITAMIN [Concomitant]
     Active Substance: VITAMINS
  7. PEPCID [Concomitant]
     Active Substance: FAMOTIDINE
  8. BREO ELLIPTA INH [Concomitant]
  9. GABAPENTIN. [Concomitant]
     Active Substance: GABAPENTIN
  10. OMEPRAZOLE. [Concomitant]
     Active Substance: OMEPRAZOLE
  11. ROSUVASTATIN. [Concomitant]
     Active Substance: ROSUVASTATIN
  12. ADVAIR DISKU AER [Concomitant]
  13. DIAZEPAM. [Concomitant]
     Active Substance: DIAZEPAM

REACTIONS (3)
  - Pruritus [None]
  - Somnolence [None]
  - Cardiac failure congestive [None]
